FAERS Safety Report 7823152-X (Version None)
Quarter: 2011Q4

REPORT INFORMATION
  Report Type: 
  Country: None (occurrence: None)
  Receive Date: 20111019
  Receipt Date: 20111008
  Transmission Date: 20120403
  Serious: No
  Sender: FDA-Public Use
  Company Number: US-BIOGENIDEC-2011BI038540

PATIENT
  Sex: Female

DRUGS (3)
  1. TYSABRI [Suspect]
     Route: 042
     Dates: start: 20091005, end: 20110103
  2. TYSABRI [Suspect]
     Indication: MULTIPLE SCLEROSIS
     Route: 042
     Dates: start: 20110411
  3. TYSABRI [Suspect]
     Route: 042
     Dates: start: 20080903, end: 20081216

REACTIONS (5)
  - BALANCE DISORDER [None]
  - NYSTAGMUS [None]
  - DEPRESSION [None]
  - FATIGUE [None]
  - MULTIPLE SCLEROSIS RELAPSE [None]
